FAERS Safety Report 6192796-6 (Version None)
Quarter: 2009Q2

REPORT INFORMATION
  Report Type: 
  Country: None (occurrence: None)
  Receive Date: 20090518
  Receipt Date: 20090508
  Transmission Date: 20091009
  Serious: Yes (Hospitalization)
  Sender: FDA-Public Use
  Company Number: PL-BRISTOL-MYERS SQUIBB COMPANY-14623862

PATIENT
  Age: 87 Year

DRUGS (2)
  1. MODURETIC 5-50 [Suspect]
     Dosage: 1DF = 0.005/0.O5 G
     Route: 048
  2. POTASSIUM CHLORIDE [Suspect]
     Dosage: 1DF=0.39LG

REACTIONS (5)
  - APATHY [None]
  - ATRIOVENTRICULAR BLOCK COMPLETE [None]
  - COMMUNICATION DISORDER [None]
  - HYPERKALAEMIA [None]
  - MALAISE [None]
